FAERS Safety Report 9064312 (Version 1)
Quarter: 2013Q1

REPORT INFORMATION
  Report Type: Spontaneous
  Country: IE (occurrence: IE)
  Receive Date: 20130128
  Receipt Date: 20130128
  Transmission Date: 20140127
  Serious: Yes (Hospitalization, Other)
  Sender: FDA-Public Use
  Company Number: IE-JNJFOC-20120909976

PATIENT
  Age: 74 Year
  Sex: Male

DRUGS (5)
  1. DUROGESIC DTRANS [Suspect]
     Indication: PAIN
     Route: 062
     Dates: start: 201201, end: 20120831
  2. DUROGESIC DTRANS [Suspect]
     Indication: TARSAL TUNNEL SYNDROME
     Route: 062
     Dates: start: 201201, end: 20120831
  3. QUETIAPINE [Concomitant]
     Indication: RELAXATION THERAPY
     Route: 065
  4. QUETIAPINE [Concomitant]
     Indication: RELAXATION THERAPY
     Route: 065
  5. QUETIAPINE [Concomitant]
     Indication: RELAXATION THERAPY
     Route: 065

REACTIONS (7)
  - Withdrawal syndrome [Recovered/Resolved]
  - Fatigue [Unknown]
  - Agitation [Unknown]
  - Feeling of body temperature change [Unknown]
  - Photophobia [Unknown]
  - Insomnia [Unknown]
  - Aggression [Unknown]
